FAERS Safety Report 9563401 (Version 3)
Quarter: 2013Q4

REPORT INFORMATION
  Report Type: Spontaneous
  Country: GB (occurrence: None)
  Receive Date: 20130926
  Receipt Date: 20131022
  Transmission Date: 20140711
  Serious: Yes (Other)
  Sender: FDA-Public Use
  Company Number: KAD201309-001228

PATIENT
  Age: 59 Year
  Sex: Male

DRUGS (3)
  1. RIBAVIRIN [Suspect]
     Indication: HEPATITIS C
     Route: 048
     Dates: start: 20121108
  2. PEG-INTERFERON ALFA-2B [Suspect]
     Indication: HEPATITIS C
     Dosage: ONCE WEEKLY, SUBCUTANEOUS
     Route: 058
     Dates: start: 20121108
  3. INCIVO (TELAPREVIR) [Suspect]
     Indication: HEPATITIS C
     Dosage: TABLET, 750 MG, THRICE DAILY
     Dates: start: 20121108

REACTIONS (10)
  - Oropharyngeal pain [None]
  - Pruritus [None]
  - Nausea [None]
  - Oral pain [None]
  - Decreased appetite [None]
  - Fatigue [None]
  - Depression [None]
  - Chest discomfort [None]
  - Influenza like illness [None]
  - Rash [None]
